FAERS Safety Report 4362202-2 (Version None)
Quarter: 2004Q2

REPORT INFORMATION
  Report Type: 
  Country: None (occurrence: None)
  Receive Date: 20040521
  Receipt Date: 20040514
  Transmission Date: 20050107
  Serious: Yes (Hospitalization)
  Sender: FDA-Public Use
  Company Number: 200411954FR

PATIENT
  Age: 20 Month
  Sex: Male
  Weight: 11.5 kg

DRUGS (6)
  1. CLAFORAN [Suspect]
     Indication: INTERVERTEBRAL DISCITIS
     Route: 042
     Dates: start: 20040402, end: 20040421
  2. FOSFOCINE [Suspect]
     Indication: INTERVERTEBRAL DISCITIS
     Route: 042
     Dates: start: 20040402, end: 20040421
  3. ATARAX [Concomitant]
     Dates: start: 20040407, end: 20040413
  4. SUFENTA [Concomitant]
     Dates: start: 20040407, end: 20040413
  5. ACETAMINOPHEN [Concomitant]
     Dates: start: 20040407, end: 20040413
  6. NUBAIN [Concomitant]
     Dates: start: 20040407, end: 20040407

REACTIONS (11)
  - BLOOD CREATINE PHOSPHOKINASE INCREASED [None]
  - BLOOD LACTATE DEHYDROGENASE INCREASED [None]
  - CHILLS [None]
  - ERYTHEMA MULTIFORME [None]
  - HISTIOCYTOSIS HAEMATOPHAGIC [None]
  - LYMPHADENOPATHY [None]
  - OEDEMA PERIPHERAL [None]
  - PANCYTOPENIA [None]
  - PYREXIA [None]
  - SERUM FERRITIN INCREASED [None]
  - TRANSAMINASES INCREASED [None]
